FAERS Safety Report 6505218-X (Version None)
Quarter: 2009Q4

REPORT INFORMATION
  Report Type: 
  Country: None (occurrence: None)
  Receive Date: 20091216
  Receipt Date: 20091202
  Transmission Date: 20100525
  Serious: Yes (Hospitalization, Other)
  Sender: FDA-Public Use
  Company Number: 230621J08CAN

PATIENT
  Age: 53 Year
  Sex: Male

DRUGS (16)
  1. REBIF [Suspect]
     Indication: RELAPSING-REMITTING MULTIPLE SCLEROSIS
     Dosage: 44 MCG, 3 IN 1 WEEKS
     Dates: start: 20000117, end: 20080601
  2. REBIF [Suspect]
     Indication: RELAPSING-REMITTING MULTIPLE SCLEROSIS
     Dosage: 44 MCG, 3 IN 1 WEEKS
     Dates: start: 20080728
  3. BACLOFEN [Concomitant]
  4. GABAPENTIN [Concomitant]
  5. CITALOPRAM (CITALOPRAM /00582601/) [Concomitant]
  6. AMITRIPTYLINE HCL [Concomitant]
  7. CELEBREX [Concomitant]
  8. DOMPERIDONE (DOMPERIDONE) [Concomitant]
  9. CRESTOR [Concomitant]
  10. METOPROLOL (METOPROLOL /00376901/) [Concomitant]
  11. PLAVIX [Concomitant]
  12. PANTOPRAZOLE SODIUM [Concomitant]
  13. DETROL [Concomitant]
  14. RAMIPRIL (RAMIPRIL /00885601/) [Concomitant]
  15. TAMSULOSIN HCL [Concomitant]
  16. CHOLESTYRAMINE (COLESTYRAMINE) [Concomitant]

REACTIONS (9)
  - ARTHRITIS [None]
  - ASTHENIA [None]
  - CARDIAC DISORDER [None]
  - CHOLELITHIASIS [None]
  - CYSTITIS [None]
  - FATIGUE [None]
  - MULTIPLE SCLEROSIS RELAPSE [None]
  - MUSCLE SPASMS [None]
  - URINARY INCONTINENCE [None]
